FAERS Safety Report 25866879 (Version 2)
Quarter: 2025Q4

REPORT INFORMATION
  Report Type: Spontaneous
  Country: CA (occurrence: None)
  Receive Date: 20251001
  Receipt Date: 20251007
  Transmission Date: 20260117
  Serious: Yes (Other)
  Sender: ORION
  Company Number: CA-PFIZER INC-202500190311

PATIENT
  Age: 71 Year
  Sex: Male

DRUGS (1)
  1. METHOTREXATE [Suspect]
     Active Substance: METHOTREXATE
     Indication: Rheumatoid arthritis
     Dosage: ONGOING
     Dates: start: 2023

REACTIONS (3)
  - Carpal tunnel syndrome [Unknown]
  - Raynaud^s phenomenon [Unknown]
  - Rheumatoid arthritis [Not Recovered/Not Resolved]
